FAERS Safety Report 6303959-0 (Version None)
Quarter: 2009Q3

REPORT INFORMATION
  Report Type: 
  Country: None (occurrence: None)
  Receive Date: 20090810
  Receipt Date: 20090810
  Transmission Date: 20100115
  Serious: Yes (Disabling, Other)
  Sender: FDA-Public Use
  Company Number: None

PATIENT
  Age: 44 Year
  Sex: Female
  Weight: 122.4712 kg

DRUGS (1)
  1. PREDNISONE TAB [Suspect]
     Indication: NERVE COMPRESSION
     Dosage: 3 TABLETS ONCE A DAY PO
     Route: 048
     Dates: start: 20090805, end: 20090808

REACTIONS (1)
  - DYSTONIA [None]
